FAERS Safety Report 11686703 (Version 2)
Quarter: 2019Q3

REPORT INFORMATION
  Report Type: Spontaneous
  Country: FI (occurrence: FI)
  Receive Date: 20151030
  Receipt Date: 20190705
  Transmission Date: 20191004
  Serious: Yes (Other)
  Sender: FDA-Public Use
  Company Number: PHHY2015FI138238

PATIENT
  Age: 36 Year
  Sex: Female

DRUGS (25)
  1. ALBETOL [Suspect]
     Active Substance: LABETALOL HYDROCHLORIDE
     Indication: HYPERTENSION
     Dosage: 100 MG, BID
     Route: 065
     Dates: start: 20130206, end: 201302
  2. OBSIDAN (FERROUS GLYCINE SULFATE) [Suspect]
     Active Substance: FERROUS GLYCINE SULFATE
     Indication: IRON DEFICIENCY ANAEMIA
     Dosage: UNK
     Route: 065
     Dates: start: 20120815, end: 20120903
  3. SOMAC [Suspect]
     Active Substance: PANTOPRAZOLE SODIUM
     Indication: PROPHYLAXIS
     Dosage: UNK
     Route: 065
     Dates: start: 20120729, end: 20120814
  4. KLEXANE [Suspect]
     Active Substance: ENOXAPARIN
     Indication: INTRACRANIAL VENOUS SINUS THROMBOSIS
     Dosage: 40 MG, BID
     Route: 065
     Dates: start: 20120729, end: 20130206
  5. KEPPRA [Suspect]
     Active Substance: LEVETIRACETAM
     Indication: SEIZURE
     Dosage: 3000 MG, UNK
     Route: 065
  6. PHENYTOINE [Suspect]
     Active Substance: PHENYTOIN
     Indication: PRODUCT USED FOR UNKNOWN INDICATION
     Route: 065
  7. HEPARIN [Suspect]
     Active Substance: HEPARIN SODIUM
     Indication: INTRACRANIAL VENOUS SINUS THROMBOSIS
     Dosage: UNK
     Route: 042
     Dates: start: 20120728, end: 20120728
  8. FOLVITE [Suspect]
     Active Substance: FOLIC ACID
     Indication: HIGH RISK PREGNANCY
     Dosage: 4 MG, QD
     Route: 065
     Dates: start: 20120816, end: 20130206
  9. PRO-EPANUTIN [Suspect]
     Active Substance: FOSPHENYTOIN SODIUM
     Indication: EPILEPSY
     Dosage: 600 UNK, UNK
     Route: 065
  10. HYDANTIN [Suspect]
     Active Substance: PHENYTOIN
     Indication: PRODUCT USED FOR UNKNOWN INDICATION
     Dosage: UNK
     Route: 065
     Dates: start: 20120814, end: 20120910
  11. LACOSAMIDE. [Suspect]
     Active Substance: LACOSAMIDE
     Indication: STATUS EPILEPTICUS
     Dosage: 100 MG, BID
     Route: 065
     Dates: start: 20120730
  12. AMOXIN COMP [Suspect]
     Active Substance: AMOXICILLIN\CLAVULANIC ACID
     Indication: PNEUMONIA
     Dosage: UNK
     Route: 065
     Dates: start: 20120820, end: 20120828
  13. MIDAZOLAM [Suspect]
     Active Substance: MIDAZOLAM HYDROCHLORIDE
     Indication: PRODUCT USED FOR UNKNOWN INDICATION
     Route: 041
  14. CEFTRIAXONE. [Suspect]
     Active Substance: CEFTRIAXONE
     Indication: PNEUMONIA
     Route: 065
  15. LACOSAMIDE. [Suspect]
     Active Substance: LACOSAMIDE
     Indication: SEIZURE
     Dosage: 300 MG, UNK
     Route: 065
  16. ATIVAN [Suspect]
     Active Substance: LORAZEPAM
     Indication: SEIZURE
     Dosage: 6 MG, UNK
     Route: 065
  17. LACOSAMIDE. [Suspect]
     Active Substance: LACOSAMIDE
     Dosage: 150 MG, BID
     Route: 065
     Dates: start: 201207, end: 201207
  18. KEPPRA [Suspect]
     Active Substance: LEVETIRACETAM
     Dosage: 1000 MG, BID
     Route: 065
     Dates: start: 20120729
  19. PRO-EPANUTIN [Suspect]
     Active Substance: FOSPHENYTOIN SODIUM
     Indication: SEIZURE
     Dosage: 250 MG, BID
     Route: 065
     Dates: start: 20120729, end: 20120814
  20. PROPOFOL. [Suspect]
     Active Substance: PROPOFOL
     Indication: PRODUCT USED FOR UNKNOWN INDICATION
     Route: 065
  21. KLEXANE [Suspect]
     Active Substance: ENOXAPARIN
     Dosage: 40 MG, BID
     Route: 065
     Dates: start: 20130206, end: 201302
  22. STESOLID [Suspect]
     Active Substance: DIAZEPAM
     Indication: SEIZURE
     Dosage: 10 MG, UNK
     Route: 042
  23. ALBETOL [Suspect]
     Active Substance: LABETALOL HYDROCHLORIDE
     Dosage: 100 UNK, UNK
     Route: 065
     Dates: start: 20120817, end: 20130206
  24. ENOXAPARIN [Suspect]
     Active Substance: ENOXAPARIN
     Indication: PRODUCT USED FOR UNKNOWN INDICATION
     Route: 065
  25. TAZOCIN [Suspect]
     Active Substance: PIPERACILLIN SODIUM\TAZOBACTAM SODIUM
     Indication: PNEUMONIA
     Route: 065

REACTIONS (4)
  - Maternal exposure during pregnancy [Unknown]
  - Off label use [Unknown]
  - Premature delivery [Unknown]
  - Seizure [Unknown]

NARRATIVE: CASE EVENT DATE: 20130206
